FAERS Safety Report 5383619-3 (Version None)
Quarter: 2007Q3

REPORT INFORMATION
  Report Type: 
  Country: None (occurrence: None)
  Receive Date: 20070706
  Receipt Date: 20070627
  Transmission Date: 20080115
  Serious: Yes (Hospitalization)
  Sender: FDA-Public Use
  Company Number: 158056ISR

PATIENT
  Age: 73 Year
  Sex: Female

DRUGS (3)
  1. METFORMIN HCL [Suspect]
     Indication: TYPE 2 DIABETES MELLITUS
     Dosage: 1500 MG (500 MG, 3 IN 1 D) ORAL
     Route: 048
     Dates: end: 20070604
  2. INDAPAMIDE W/PERINDOPRIL [Suspect]
     Indication: BLOOD PRESSURE INCREASED
     Dosage: 4 MG (4 MG, 1 IN 1 D)
     Dates: end: 20070604
  3. GLIPIZIDE [Suspect]
     Dosage: 10 MG (10 MG, 1 IN 1 D) ORAL
     Route: 048
     Dates: start: 20070605

REACTIONS (2)
  - LACTIC ACIDOSIS [None]
  - RENAL FAILURE ACUTE [None]
